FAERS Safety Report 21478772 (Version 3)
Quarter: 2025Q1

REPORT INFORMATION
  Report Type: Spontaneous
  Country: US (occurrence: US)
  Receive Date: 20221019
  Receipt Date: 20250207
  Transmission Date: 20250408
  Serious: Yes (Other)
  Sender: SANOFI AVENTIS
  Company Number: US-SA-SAC20221018000424

PATIENT
  Age: 59 Year
  Sex: Male

DRUGS (2)
  1. ALPROLIX [Suspect]
     Active Substance: EFTRENONACOG ALFA
  2. ALPROLIX [Suspect]
     Active Substance: EFTRENONACOG ALFA

REACTIONS (3)
  - Haemarthrosis [Unknown]
  - Haemorrhage [Unknown]
  - Tooth extraction [Unknown]

NARRATIVE: CASE EVENT DATE: 20221007
